FAERS Safety Report 18314210 (Version 3)
Quarter: 2020Q3

REPORT INFORMATION
  Report Type: Report from Study
  Country: None (occurrence: US)
  Receive Date: 20200926
  Receipt Date: 20200929
  Transmission Date: 20201103
  Serious: Yes (Other)
  Sender: FDA-Public Use
  Company Number: US-ABBVIE-20K-163-3537538-00

PATIENT
  Sex: Female

DRUGS (1)
  1. VENCLEXTA [Suspect]
     Active Substance: VENETOCLAX
     Indication: T-CELL PROLYMPHOCYTIC LEUKAEMIA
     Route: 048

REACTIONS (6)
  - Off label use [Unknown]
  - T-cell prolymphocytic leukaemia [Unknown]
  - White blood cell count increased [Unknown]
  - Platelet count decreased [Unknown]
  - Drug intolerance [Unknown]
  - Neutrophil count decreased [Unknown]
